FAERS Safety Report 17306237 (Version 1)
Quarter: 2020Q1

REPORT INFORMATION
  Report Type: Spontaneous
  Country: US (occurrence: US)
  Receive Date: 20200123
  Receipt Date: 20200123
  Transmission Date: 20200409
  Serious: No
  Sender: FDA-Public Use
  Company Number: US-US WORLDMEDS, LLC-USW201905-000926

PATIENT
  Sex: Female

DRUGS (1)
  1. MYOBLOC [Suspect]
     Active Substance: RIMABOTULINUMTOXINB
     Indication: HEMIPLEGIA

REACTIONS (1)
  - Product use in unapproved indication [Unknown]
